FAERS Safety Report 23385562 (Version 1)
Quarter: 2024Q1

REPORT INFORMATION
  Report Type: Spontaneous
  Country: TW (occurrence: None)
  Receive Date: 20240110
  Receipt Date: 20240110
  Transmission Date: 20240410
  Serious: Yes (Other)
  Sender: FDA-Public Use
  Company Number: TW-ROCHE-3487185

PATIENT
  Age: 61 Year
  Sex: Male

DRUGS (3)
  1. TECENTRIQ [Suspect]
     Active Substance: ATEZOLIZUMAB
     Indication: Small cell lung cancer extensive stage
     Route: 041
  2. CARBOPLATIN [Concomitant]
     Active Substance: CARBOPLATIN
     Indication: Small cell lung cancer extensive stage
     Dosage: CARBOPLATIN: AUC 5 MG/ML/MIN IV, DAY 1
     Route: 042
  3. ETOPOSIDE [Concomitant]
     Active Substance: ETOPOSIDE
     Indication: Small cell lung cancer extensive stage
     Dosage: ETOPOSIDE: 100 MG/M2 IV, DAYS 1-3
     Route: 042

REACTIONS (3)
  - Metastases to central nervous system [Unknown]
  - Nervous system disorder [Unknown]
  - Central hypothyroidism [Unknown]
